FAERS Safety Report 5978610-X (Version None)
Quarter: 2008Q4

REPORT INFORMATION
  Report Type: 
  Country: None (occurrence: None)
  Receive Date: 20081204
  Receipt Date: 20081201
  Transmission Date: 20090506
  Serious: Yes (Other)
  Sender: FDA-Public Use
  Company Number: D0059677A

PATIENT
  Age: 45 Year
  Sex: Female

DRUGS (1)
  1. PAROXETINE HCL [Suspect]
     Indication: OBSESSIVE-COMPULSIVE DISORDER
     Dosage: 20MG UNKNOWN
     Route: 048
     Dates: start: 20081101

REACTIONS (5)
  - AGITATION [None]
  - ANXIETY [None]
  - ASTHENIA [None]
  - FATIGUE [None]
  - TREMOR [None]
